FAERS Safety Report 13377465 (Version 2)
Quarter: 2019Q3

REPORT INFORMATION
  Report Type: Spontaneous
  Country: BR (occurrence: BR)
  Receive Date: 20170328
  Receipt Date: 20190821
  Transmission Date: 20191004
  Serious: Yes (Hospitalization, Disabling, Other)
  Sender: FDA-Public Use
  Company Number: BR-TEVA-751385ROM

PATIENT
  Age: 40 Year
  Sex: Female
  Weight: 120 kg

DRUGS (4)
  1. COPAXONE [Suspect]
     Active Substance: GLATIRAMER ACETATE
     Indication: MULTIPLE SCLEROSIS
     Dosage: 20 MILLIGRAM DAILY;
     Dates: end: 20101027
  2. ENALAPRIL [Concomitant]
     Active Substance: ENALAPRIL
     Indication: BLOOD PRESSURE MEASUREMENT
     Route: 065
  3. DIANE (CYPROTERONE ACETATE\ETHINYL ESTRADIOL) [Concomitant]
     Active Substance: CYPROTERONE ACETATE\ETHINYL ESTRADIOL
     Dosage: SINCE FIRST MENSTRUATION
     Route: 048
     Dates: start: 201009
  4. COPAXONE [Suspect]
     Active Substance: GLATIRAMER ACETATE
     Dosage: 20 MILLIGRAM DAILY;
     Dates: start: 201108

REACTIONS (19)
  - Wheelchair user [Not Recovered/Not Resolved]
  - Dysstasia [Not Recovered/Not Resolved]
  - Gait inability [Not Recovered/Not Resolved]
  - Multiple sclerosis relapse [Recovered/Resolved]
  - Bedridden [Not Recovered/Not Resolved]
  - Maternal exposure during pregnancy [Unknown]
  - Weight increased [Not Recovered/Not Resolved]
  - Caesarean section [Unknown]
  - Peripheral swelling [Recovered/Resolved]
  - Fall [Recovered/Resolved]
  - Gait disturbance [Recovered/Resolved]
  - Weight decreased [Recovered/Resolved]
  - Metabolic surgery [Recovered/Resolved]
  - Anaemia [Recovered/Resolved]
  - Urinary incontinence [Recovered/Resolved]
  - Arthropathy [Not Recovered/Not Resolved]
  - Normal newborn [Unknown]
  - High risk pregnancy [Recovered/Resolved]
  - Exposure via breast milk [Unknown]

NARRATIVE: CASE EVENT DATE: 2010
